FAERS Safety Report 24252949 (Version 2)
Quarter: 2024Q3

REPORT INFORMATION
  Report Type: Report from Study
  Country: CA (occurrence: CA)
  Receive Date: 20240827
  Receipt Date: 20240917
  Transmission Date: 20241017
  Serious: Yes (Hospitalization, Other)
  Sender: CSL BEHRING
  Company Number: CA-BEH-2023165199

PATIENT
  Age: 84 Year
  Sex: Female
  Weight: 70.295 kg

DRUGS (12)
  1. HIZENTRA [Suspect]
     Active Substance: HUMAN IMMUNOGLOBULIN G
     Indication: Primary immunodeficiency syndrome
     Dosage: 5 GRAM, QW
     Route: 065
     Dates: start: 20230321
  2. HIZENTRA [Suspect]
     Active Substance: HUMAN IMMUNOGLOBULIN G
     Dosage: 6 G, QW
     Route: 065
  3. CUVITRU [Suspect]
     Active Substance: HUMAN IMMUNOGLOBULIN G
     Dosage: UNK
     Route: 058
     Dates: start: 202310
  4. MYRBETRIQ [Concomitant]
     Active Substance: MIRABEGRON
  5. DILOTAB [PARACETAMOL;PSEUDOEPHEDRINE HYDROCHLORIDE] [Concomitant]
  6. ATROVENT [Concomitant]
     Active Substance: IPRATROPIUM BROMIDE
  7. BUDESONIDE [Concomitant]
     Active Substance: BUDESONIDE
  8. CANDESARTAN [Concomitant]
     Active Substance: CANDESARTAN
  9. ROSUVASTATIN [Concomitant]
     Active Substance: ROSUVASTATIN\ROSUVASTATIN CALCIUM
  10. FUROSEMIDE [Concomitant]
     Active Substance: FUROSEMIDE
  11. BREZTRI [Concomitant]
     Active Substance: BUDESONIDE\FORMOTEROL\GLYCOPYRROLATE
  12. ALBUTEROL [Concomitant]
     Active Substance: ALBUTEROL

REACTIONS (11)
  - Hypogammaglobulinaemia [Unknown]
  - Emergency care [Unknown]
  - Wrong product administered [Unknown]
  - Myalgia [Recovered/Resolved]
  - Headache [Recovered/Resolved]
  - Pyrexia [Recovered/Resolved]
  - Infection [Unknown]
  - Chronic obstructive pulmonary disease [Unknown]
  - Product dose omission issue [Unknown]
  - Chronic obstructive pulmonary disease [Unknown]
  - Secretion discharge [Unknown]

NARRATIVE: CASE EVENT DATE: 20231201
